FAERS Safety Report 25059444 (Version 1)
Quarter: 2025Q1

REPORT INFORMATION
  Report Type: Spontaneous
  Country: US (occurrence: None)
  Receive Date: 20250310
  Receipt Date: 20250310
  Transmission Date: 20250409
  Serious: Yes (Hospitalization)
  Sender: FDA-CTU
  Company Number: None

PATIENT
  Age: 51 Year
  Sex: Male

DRUGS (3)
  1. AMBRISENTAN [Suspect]
     Active Substance: AMBRISENTAN
     Indication: Pulmonary arterial hypertension
     Dosage: FREQUENCY : DAILY;?
     Route: 048
     Dates: start: 202107
  2. CRENITRAM [Concomitant]
  3. ADEMPAS [Concomitant]
     Active Substance: RIOCIGUAT

REACTIONS (1)
  - Small intestinal obstruction [None]

NARRATIVE: CASE EVENT DATE: 20250304
